FAERS Safety Report 6015181-6 (Version None)
Quarter: 2008Q4

REPORT INFORMATION
  Report Type: 
  Country: None (occurrence: None)
  Receive Date: 20081222
  Receipt Date: 20081210
  Transmission Date: 20090506
  Serious: Yes (Other)
  Sender: FDA-Public Use
  Company Number: GR-JNJFOC-20081204666

PATIENT
  Age: 68 Year
  Sex: Female
  Weight: 120 kg

DRUGS (1)
  1. REMICADE [Suspect]
     Indication: RHEUMATOID ARTHRITIS
     Dosage: 45 DAYS
     Route: 042

REACTIONS (3)
  - BONE TUBERCULOSIS [None]
  - LYMPH NODE TUBERCULOSIS [None]
  - MUSCLE ABSCESS [None]
